FAERS Safety Report 15940407 (Version 2)
Quarter: 2020Q1

REPORT INFORMATION
  Report Type: Spontaneous
  Country: US (occurrence: US)
  Receive Date: 20190208
  Receipt Date: 20200310
  Transmission Date: 20200409
  Serious: Yes (Other)
  Sender: FDA-Public Use
  Company Number: US-ASTRAZENECA-2018SF65400

PATIENT

DRUGS (15)
  1. PRILOSEC [Suspect]
     Active Substance: OMEPRAZOLE MAGNESIUM
     Route: 048
     Dates: start: 2008
  2. MUCINEX [Concomitant]
     Active Substance: GUAIFENESIN
     Dosage: 600.0MG EVERY 4 - 6 HOURS
     Route: 048
     Dates: start: 20081122
  3. PREDNISONE. [Concomitant]
     Active Substance: PREDNISONE
     Dosage: 5 MG PAK
     Dates: start: 20081230
  4. HYDROCO/ACETAMIN [Concomitant]
     Route: 048
     Dates: start: 20080926
  5. NEXIUM [Suspect]
     Active Substance: ESOMEPRAZOLE MAGNESIUM
     Route: 048
     Dates: start: 2008
  6. ALPRAZOLAM. [Concomitant]
     Active Substance: ALPRAZOLAM
     Dosage: 1.0MG EVERY 8 - 12 HOURS
     Route: 048
     Dates: start: 20080902
  7. LYRICA [Concomitant]
     Active Substance: PREGABALIN
     Route: 048
     Dates: start: 20080926
  8. CIPROFLOXACIN. [Concomitant]
     Active Substance: CIPROFLOXACIN
     Dosage: 500.0MG EVERY 4 - 6 HOURS
     Route: 048
     Dates: start: 20081122
  9. POTASSIUM CHLORIDE. [Concomitant]
     Active Substance: POTASSIUM CHLORIDE
     Dosage: 10 MEQ ER CAP
     Dates: start: 20081230
  10. NYSTATIN. [Concomitant]
     Active Substance: NYSTATIN
     Dosage: 10,0000 CRE
     Dates: start: 20080902
  11. CEPHALEXIN. [Concomitant]
     Active Substance: CEPHALEXIN
     Route: 048
     Dates: start: 20080926
  12. ALBUTEROL. [Concomitant]
     Active Substance: ALBUTEROL
     Dosage: 0.083 % 3 ML NEB
     Dates: start: 20081230
  13. PRILOSEC OTC [Suspect]
     Active Substance: OMEPRAZOLE MAGNESIUM
     Route: 048
     Dates: start: 20080928
  14. AZITHROMYCIN ANHYDROUS. [Concomitant]
     Active Substance: AZITHROMYCIN ANHYDROUS
     Route: 048
     Dates: start: 20080923
  15. PRILOSEC OTC [Suspect]
     Active Substance: OMEPRAZOLE MAGNESIUM
     Route: 048
     Dates: start: 2008

REACTIONS (3)
  - Renal injury [Unknown]
  - Rebound acid hypersecretion [Unknown]
  - Renal failure [Unknown]
